FAERS Safety Report 6680900-2 (Version None)
Quarter: 2010Q2

REPORT INFORMATION
  Report Type: 
  Country: None (occurrence: None)
  Receive Date: 20100412
  Receipt Date: 20100401
  Transmission Date: 20101027
  Serious: Yes (Hospitalization)
  Sender: FDA-Public Use
  Company Number: 97779

PATIENT
  Age: 67 Year
  Sex: Male

DRUGS (1)
  1. CISPLATIN [Suspect]
     Indication: OESOPHAGEAL CARCINOMA
     Dosage: 80 MG/M2; INADVENTENTLY RECEIVED 80MG/M2; DAY 1 ONLY; DAYS 1-3

REACTIONS (16)
  - ALANINE AMINOTRANSFERASE INCREASED [None]
  - ASPARTATE AMINOTRANSFERASE INCREASED [None]
  - BACTERIAL INFECTION [None]
  - BLOOD AMYLASE INCREASED [None]
  - BLOOD LACTATE DEHYDROGENASE INCREASED [None]
  - DEAFNESS [None]
  - HAEMODIALYSIS [None]
  - HEPATIC FUNCTION ABNORMAL [None]
  - LEUKOPENIA [None]
  - MEDICATION ERROR [None]
  - MUCOSAL INFLAMMATION [None]
  - OTOTOXICITY [None]
  - OVERDOSE [None]
  - PANCREATITIS [None]
  - PYREXIA [None]
  - RENAL FAILURE [None]
